FAERS Safety Report 7078981-X (Version None)
Quarter: 2010Q4

REPORT INFORMATION
  Report Type: 
  Country: None (occurrence: None)
  Receive Date: 20101102
  Receipt Date: 20101025
  Transmission Date: 20110411
  Serious: Yes (Other)
  Sender: FDA-Public Use
  Company Number: US-ROCHE-720102

PATIENT
  Sex: Female
  Weight: 51.3 kg

DRUGS (6)
  1. BONIVA [Suspect]
     Indication: OSTEOPOROSIS
     Route: 048
     Dates: start: 20050101, end: 20100701
  2. PREMARIN [Concomitant]
     Indication: HORMONE REPLACEMENT THERAPY
     Dosage: FREQUENCY: 8D
     Route: 048
     Dates: start: 19960201, end: 20100818
  3. AMITRIPTYLINE HCL [Concomitant]
     Indication: SLEEP DISORDER
     Dosage: EVERY NIGHT
     Route: 048
     Dates: start: 20090101
  4. NAPROXEN [Concomitant]
     Indication: ANTIINFLAMMATORY THERAPY
     Dosage: AS REQUIRED
     Route: 048
     Dates: start: 20090101
  5. IMITREX [Concomitant]
     Indication: MIGRAINE
     Dosage: AS REQUIRED
     Route: 048
     Dates: start: 20060101
  6. CALCIUM [Concomitant]
     Dates: start: 20000101

REACTIONS (1)
  - FEMUR FRACTURE [None]
